FAERS Safety Report 4989918-9 (Version None)
Quarter: 2006Q2

REPORT INFORMATION
  Report Type: 
  Country: None (occurrence: None)
  Receive Date: 20060503
  Receipt Date: 20060427
  Transmission Date: 20061013
  Serious: Yes (Hospitalization)
  Sender: FDA-Public Use
  Company Number: 2006AP01996

PATIENT
  Age: 29380 Day
  Sex: Female

DRUGS (13)
  1. ATACAND [Suspect]
     Indication: ESSENTIAL HYPERTENSION
     Route: 048
     Dates: end: 20060109
  2. LIPEX [Suspect]
     Indication: METABOLIC DISORDER
     Route: 048
     Dates: end: 20060104
  3. METFORMIN HYDROCHLORIDE [Suspect]
     Indication: DIABETES MELLITUS
     Route: 048
     Dates: end: 20060109
  4. PEXSIG [Suspect]
     Indication: ANGINA PECTORIS
     Route: 048
     Dates: end: 20060109
  5. PEXSIG [Suspect]
     Indication: HYPERTENSION
     Route: 048
     Dates: end: 20060109
  6. CARDIZEM CD [Concomitant]
     Indication: ANGINA PECTORIS
  7. CARDIZEM CD [Concomitant]
     Indication: HYPERTENSION
  8. ATROVENT [Concomitant]
  9. ASPIRIN [Concomitant]
  10. LASIX [Concomitant]
  11. VENTOLIN [Concomitant]
  12. IMDUR [Concomitant]
  13. PLAVIX [Concomitant]

REACTIONS (4)
  - CHEST PAIN [None]
  - DYSPNOEA [None]
  - RENAL FAILURE ACUTE [None]
  - RHABDOMYOLYSIS [None]
